FAERS Safety Report 23695079 (Version 3)
Quarter: 2024Q2

REPORT INFORMATION
  Report Type: Spontaneous
  Country: US (occurrence: US)
  Receive Date: 20240402
  Receipt Date: 20240619
  Transmission Date: 20240715
  Serious: No
  Sender: FDA-Public Use
  Company Number: US-SA-2024SA093792

PATIENT
  Age: 15 Year
  Sex: Male
  Weight: 67.2 kg

DRUGS (5)
  1. ALPROLIX [Suspect]
     Active Substance: EFTRENONACOG ALFA
     Indication: Factor IX deficiency
     Dosage: 3800 U (3420-4180) , QW FOR PROPHYLAXIS AND AS DIRECTED FOR BLEED TREATMENT
     Route: 042
     Dates: start: 202303
  2. ALPROLIX [Suspect]
     Active Substance: EFTRENONACOG ALFA
     Indication: Factor IX deficiency
     Dosage: 3800 U (3420-4180) , QW FOR PROPHYLAXIS AND AS DIRECTED FOR BLEED TREATMENT
     Route: 042
     Dates: start: 202303
  3. ALPROLIX [Suspect]
     Active Substance: EFTRENONACOG ALFA
     Dosage: 4100 IU
     Route: 042
  4. ALPROLIX [Suspect]
     Active Substance: EFTRENONACOG ALFA
     Dosage: 4100 IU
     Route: 042
  5. BENEFIX [Concomitant]
     Active Substance: COAGULATION FACTOR IX RECOMBINANT HUMAN\ISOPROPYL ALCOHOL
     Indication: Haemophilia
     Dosage: UNK
     Dates: start: 200906

REACTIONS (5)
  - Traumatic haemorrhage [Recovered/Resolved]
  - Fall [Unknown]
  - Injury [Recovered/Resolved]
  - Traumatic haemorrhage [Recovered/Resolved]
  - Joint injury [Recovered/Resolved]

NARRATIVE: CASE EVENT DATE: 20240307
